FAERS Safety Report 22651172 (Version 1)
Quarter: 2023Q2

REPORT INFORMATION
  Report Type: Spontaneous
  Country: US (occurrence: None)
  Receive Date: 20230627
  Receipt Date: 20230627
  Transmission Date: 20230721
  Serious: Yes (Hospitalization)
  Sender: FDA-Public Use
  Company Number: None

PATIENT
  Sex: Female

DRUGS (5)
  1. MYCOPHENOLIC ACID [Suspect]
     Active Substance: MYCOPHENOLIC ACID
     Indication: Renal transplant
     Dosage: FREQUENCY : AS DIRECTED;?
     Route: 048
     Dates: start: 20221101
  2. MYCOPHENOLAT TAB [Concomitant]
  3. TACROLIMUS [Concomitant]
     Active Substance: TACROLIMUS
  4. TYLENOL [Concomitant]
     Active Substance: ACETAMINOPHEN
  5. VALGANCICLOV TAB [Concomitant]

REACTIONS (2)
  - Pharyngitis streptococcal [None]
  - Therapy interrupted [None]
